FAERS Safety Report 21616362 (Version 1)
Quarter: 2022Q4

REPORT INFORMATION
  Report Type: Spontaneous
  Country: IN (occurrence: IN)
  Receive Date: 20221118
  Receipt Date: 20221118
  Transmission Date: 20230113
  Serious: Yes (Other)
  Sender: FDA-Public Use
  Company Number: IN-ANIPHARMA-2022-IN-000241

PATIENT
  Age: 11 Year
  Sex: Male

DRUGS (3)
  1. FLUCONAZOLE [Suspect]
     Active Substance: FLUCONAZOLE
     Indication: Antifungal prophylaxis
  2. TRETINOIN [Suspect]
     Active Substance: TRETINOIN
     Indication: Acute promyelocytic leukaemia
     Dosage: 45 MG/SQUARE-METER DAILY
  3. IDARUBICIN [Concomitant]
     Active Substance: IDARUBICIN

REACTIONS (2)
  - Drug interaction [Recovered/Resolved]
  - Hypercalcaemia [Recovered/Resolved]
